FAERS Safety Report 10013563 (Version 1)
Quarter: 2014Q1

REPORT INFORMATION
  Report Type: Spontaneous
  Country: FR (occurrence: FR)
  Receive Date: 20140315
  Receipt Date: 20140315
  Transmission Date: 20141002
  Serious: Yes (Other)
  Sender: FDA-Public Use
  Company Number: FR-ROCHE-1362407

PATIENT
  Sex: 0

DRUGS (1)
  1. BEVACIZUMAB [Suspect]
     Indication: PRODUCT USED FOR UNKNOWN INDICATION
     Route: 065

REACTIONS (8)
  - Renal failure [Unknown]
  - Thrombotic microangiopathy [Unknown]
  - Proteinuria [Unknown]
  - Hypertension [Unknown]
  - Haematuria [Unknown]
  - Anaemia [Unknown]
  - Thrombocytopenia [Unknown]
  - Haptoglobin decreased [Unknown]
